FAERS Safety Report 4927905-7 (Version None)
Quarter: 2006Q1

REPORT INFORMATION
  Report Type: 
  Country: None (occurrence: None)
  Receive Date: 20060222
  Receipt Date: 20060216
  Transmission Date: 20060701
  Serious: Yes (Life-Threatening, Other)
  Sender: FDA-Public Use
  Company Number: 200610850BWH

PATIENT
  Age: 54 Year
  Sex: Female

DRUGS (1)
  1. TRASYLOL [Suspect]
     Dosage: 200 ML ONCE INTRAVENOUS
     Route: 042
     Dates: start: 20060203

REACTIONS (8)
  - ANAESTHETIC COMPLICATION [None]
  - CENTRAL VENOUS PRESSURE INCREASED [None]
  - DELAYED RECOVERY FROM ANAESTHESIA [None]
  - DIALYSIS [None]
  - HEPATIC FAILURE [None]
  - POST PROCEDURAL COMPLICATION [None]
  - RENAL FAILURE [None]
  - THROMBOSIS [None]
